FAERS Safety Report 6958069-6 (Version None)
Quarter: 2010Q3

REPORT INFORMATION
  Report Type: 
  Country: None (occurrence: None)
  Receive Date: 20100830
  Receipt Date: 20100830
  Transmission Date: 20110219
  Serious: Yes (Hospitalization)
  Sender: FDA-Public Use
  Company Number: None

PATIENT
  Age: 39 Year
  Sex: Female
  Weight: 52.6173 kg

DRUGS (1)
  1. ALLI [Suspect]
     Indication: MEDICAL DIET
     Dosage: 60 MG WITH MEAL PO
     Route: 048
     Dates: start: 20100812, end: 20100827

REACTIONS (3)
  - APHONIA [None]
  - CONVULSION [None]
  - DYSPHAGIA [None]
